FAERS Safety Report 25179157 (Version 1)
Quarter: 2025Q2

REPORT INFORMATION
  Report Type: Spontaneous
  Country: ES (occurrence: ES)
  Receive Date: 20250409
  Receipt Date: 20250409
  Transmission Date: 20250716
  Serious: Yes (Hospitalization)
  Sender: ALNYLAM PHARMACEUTICALS
  Company Number: ES-ALNYLAM PHARMACEUTICALS, INC.-ALN-2025-002272

PATIENT

DRUGS (1)
  1. AMVUTTRA [Suspect]
     Active Substance: VUTRISIRAN
     Indication: Product used for unknown indication
     Route: 065

REACTIONS (2)
  - Cardiac failure congestive [Unknown]
  - Disease progression [Unknown]
